FAERS Safety Report 4315635-4 (Version None)
Quarter: 2004Q1

REPORT INFORMATION
  Report Type: 
  Country: None (occurrence: None)
  Receive Date: 20040311
  Receipt Date: 20040301
  Transmission Date: 20041129
  Serious: Yes (Hospitalization)
  Sender: FDA-Public Use
  Company Number: GR-GLAXOSMITHKLINE-B0325279A

PATIENT
  Age: 47 Year
  Sex: Male
  Weight: 102 kg

DRUGS (4)
  1. VENTOLIN [Suspect]
     Indication: ASTHMA
     Dosage: 100MCG AS REQUIRED
     Route: 055
     Dates: start: 20040129, end: 20040227
  2. BLINDED TRIAL MEDICATION [Suspect]
     Indication: ASTHMA
     Dates: start: 20040205, end: 20040227
  3. PULMICORT [Suspect]
     Indication: ASTHMA
     Route: 055
     Dates: start: 20040222, end: 20040222
  4. OXIS [Suspect]
     Indication: ASTHMA
     Route: 055
     Dates: start: 20040222, end: 20040222

REACTIONS (3)
  - ARRHYTHMIA SUPRAVENTRICULAR [None]
  - DYSPNOEA [None]
  - PO2 DECREASED [None]
